FAERS Safety Report 12194418 (Version 2)
Quarter: 2016Q2

REPORT INFORMATION
  Report Type: Spontaneous
  Country: JP (occurrence: JP)
  Receive Date: 20160321
  Receipt Date: 20160428
  Transmission Date: 20160815
  Serious: Yes (Other)
  Sender: FDA-Public Use
  Company Number: JP-SUN PHARMACEUTICAL INDUSTRIES LTD-2016RR-113480

PATIENT

DRUGS (8)
  1. VP-16 [Suspect]
     Active Substance: ETOPOSIDE
     Indication: CHEMOTHERAPY
     Dosage: 200 MG/M2, DAYS 7, 6, 5, 4
     Route: 065
  2. CARBOPLATIN. [Suspect]
     Active Substance: CARBOPLATIN
     Indication: CHEMOTHERAPY
     Dosage: 400 MG/M2, FOUR 21-DAY CYCLES (DAY 4, 5 ,6 7)
     Route: 065
  3. L-PAM [Suspect]
     Active Substance: MELPHALAN
     Indication: CHEMOTHERAPY
     Dosage: 90 MG/M2, DAYS 3-2
     Route: 065
  4. ETOPOSIDE. [Suspect]
     Active Substance: ETOPOSIDE
     Indication: CHEMOTHERAPY
     Dosage: 100 MG/M2, FOUR 21 DAY CYCLES (DAY 1-5)
     Route: 065
  5. VINCRISTINE [Concomitant]
     Active Substance: VINCRISTINE
     Indication: CHEMOTHERAPY
     Dosage: 1.5 MG/M2, FOUR 21 - DAY CYCLES (DAY 1)
     Route: 065
  6. CYCLOPHOSPHAMIDE. [Concomitant]
     Active Substance: CYCLOPHOSPHAMIDE
     Indication: CHEMOTHERAPY
     Dosage: FOUR 21- DAY CYCLES(DAYS 1, 3, 5)
     Route: 065
  7. METHOTREXATE [Concomitant]
     Active Substance: METHOTREXATE
     Indication: CHEMOTHERAPY
     Dosage: FOUR 21- DAY CYCLES(DAY 1)
     Route: 024
  8. CISPLATIN. [Concomitant]
     Active Substance: CISPLATIN
     Indication: CHEMOTHERAPY
     Dosage: FOUR 21- DAY CYCLES(DAYS 1-5)
     Route: 065

REACTIONS (1)
  - Haemangioma [Unknown]
